FAERS Safety Report 5015121-2 (Version None)
Quarter: 2006Q2

REPORT INFORMATION
  Report Type: 
  Country: None (occurrence: None)
  Receive Date: 20060414
  Receipt Date: 20060111
  Transmission Date: 20061013
  Serious: No
  Sender: FDA-Public Use
  Company Number: 2005SP001218

PATIENT
  Age: 22 Year
  Sex: Male
  Weight: 85.7298 kg

DRUGS (2)
  1. LUNESTA [Suspect]
     Dosage: 2 MG; ORAL   : 4 MG;1X;ORAL
     Route: 048
     Dates: start: 20050101, end: 20050101
  2. LUNESTA [Suspect]
     Dosage: 2 MG; ORAL   : 4 MG;1X;ORAL
     Route: 048
     Dates: start: 20050501, end: 20050101

REACTIONS (1)
  - RASH [None]
